FAERS Safety Report 23396300 (Version 1)
Quarter: 2024Q1

REPORT INFORMATION
  Report Type: Spontaneous
  Country: CA (occurrence: CA)
  Receive Date: 20240112
  Receipt Date: 20240112
  Transmission Date: 20240409
  Serious: Yes (Other)
  Sender: FDA-Public Use
  Company Number: None

PATIENT
  Age: 77 Year
  Sex: Male

DRUGS (2)
  1. EZETIMIBE [Suspect]
     Active Substance: EZETIMIBE
     Indication: Arteriosclerosis
  2. ATORVASTATIN [Suspect]
     Active Substance: ATORVASTATIN
     Indication: Arteriosclerosis
     Route: 058

REACTIONS (6)
  - Blood glucose abnormal [Unknown]
  - Blood potassium abnormal [Unknown]
  - Glycosylated haemoglobin increased [Unknown]
  - Mean cell haemoglobin concentration abnormal [Unknown]
  - Red blood cell count abnormal [Unknown]
  - Serum ferritin abnormal [Unknown]
